FAERS Safety Report 9982378 (Version 2)
Quarter: 2014Q1

REPORT INFORMATION
  Report Type: Report from Study
  Country: US (occurrence: US)
  Receive Date: 20140307
  Receipt Date: 20140307
  Transmission Date: 20141002
  Serious: No
  Sender: FDA-Public Use
  Company Number: US-ABBVIE-12P-163-0974644-00

PATIENT
  Age: 64 Year
  Sex: Female
  Weight: 113.5 kg

DRUGS (23)
  1. HUMIRA [Suspect]
     Indication: PSORIASIS
     Dosage: ONE DOSE
     Dates: start: 201201, end: 201201
  2. HUMIRA [Suspect]
     Dosage: ONE WEEK AFTER 80 MG DOSE
     Dates: start: 2012, end: 201210
  3. HUMALOG [Concomitant]
     Indication: DIABETES MELLITUS
  4. LANTUS [Concomitant]
     Indication: DIABETES MELLITUS
     Dosage: 20 UNITS IN THE MORNING, 40 UNITS IN THE EVENING
  5. CRESTOR [Concomitant]
     Indication: BLOOD CHOLESTEROL INCREASED
  6. BENICAR [Concomitant]
     Indication: BLOOD PRESSURE
  7. LYRICA [Concomitant]
     Indication: DIABETIC NEUROPATHY
  8. HCTZ [Concomitant]
     Indication: PRODUCT USED FOR UNKNOWN INDICATION
     Dosage: DAILY
  9. VITAMIN D [Concomitant]
     Indication: VITAMIN SUPPLEMENTATION
  10. MULTIVITAMIN FOR WOMEN OVER 50 [Concomitant]
     Indication: PRODUCT USED FOR UNKNOWN INDICATION
     Dosage: DAILY
     Route: 048
  11. LABETALOL [Concomitant]
     Indication: PRODUCT USED FOR UNKNOWN INDICATION
     Dosage: 2
     Route: 048
  12. STELARA [Concomitant]
     Indication: PSORIASIS
     Dates: start: 201306
  13. HUMALOG [Concomitant]
     Indication: DIABETES MELLITUS
  14. LANTUS [Concomitant]
     Indication: DIABETES MELLITUS
  15. CRESTOR [Concomitant]
     Indication: BLOOD CHOLESTEROL INCREASED
  16. METOPROLOL [Concomitant]
     Indication: HYPERTENSION
  17. LOSARTAN [Concomitant]
     Indication: HYPERTENSION
  18. HYDROCHLOROTHIAZIDE [Concomitant]
     Indication: FLUID RETENTION
  19. LEVOTHYROXINE [Concomitant]
     Indication: HYPOTHYROIDISM
  20. LYRICA [Concomitant]
     Indication: DIABETIC NEUROPATHY
  21. OMEPRAZOLE [Concomitant]
     Indication: GASTROOESOPHAGEAL REFLUX DISEASE
  22. ADVIL [Concomitant]
     Indication: PAIN
  23. IMODIUM [Concomitant]
     Indication: DIARRHOEA
     Dosage: AS NEEDED

REACTIONS (22)
  - Diarrhoea [Not Recovered/Not Resolved]
  - Psoriasis [Not Recovered/Not Resolved]
  - Nasopharyngitis [Not Recovered/Not Resolved]
  - Oropharyngeal pain [Not Recovered/Not Resolved]
  - Sinus congestion [Not Recovered/Not Resolved]
  - Cough [Not Recovered/Not Resolved]
  - Immunosuppression [Unknown]
  - Oropharyngeal pain [Recovered/Resolved]
  - Pyrexia [Recovered/Resolved]
  - Dyspnoea [Recovered/Resolved]
  - Bronchitis [Recovered/Resolved]
  - Sinus congestion [Recovered/Resolved]
  - Fall [Recovered/Resolved]
  - Laceration [Recovered/Resolved]
  - Laceration [Recovered/Resolved]
  - Laceration [Recovered/Resolved]
  - Fall [Recovered/Resolved]
  - Arthralgia [Not Recovered/Not Resolved]
  - Cartilage atrophy [Not Recovered/Not Resolved]
  - Localised infection [Recovered/Resolved]
  - Localised infection [Not Recovered/Not Resolved]
  - Synovial cyst [Not Recovered/Not Resolved]
